FAERS Safety Report 7124881-6 (Version None)
Quarter: 2010Q4

REPORT INFORMATION
  Report Type: 
  Country: None (occurrence: None)
  Receive Date: 20101129
  Receipt Date: 20101126
  Transmission Date: 20110411
  Serious: Yes (Death, Other)
  Sender: FDA-Public Use
  Company Number: US-PFIZER INC-2010134056

PATIENT
  Sex: Female

DRUGS (4)
  1. ACCUPRIL [Suspect]
     Dosage: UNK MG, UNK
     Route: 048
  2. GLUCOTROL XL [Suspect]
     Dosage: UNK
  3. NORVASC [Suspect]
     Dosage: UNK
  4. LIPITOR [Suspect]
     Dosage: UNK

REACTIONS (2)
  - DEATH [None]
  - DIABETES MELLITUS [None]
